FAERS Safety Report 5169706-3 (Version None)
Quarter: 2006Q4

REPORT INFORMATION
  Report Type: 
  Country: None (occurrence: None)
  Receive Date: 20061212
  Receipt Date: 20061207
  Transmission Date: 20070319
  Serious: Yes (Death)
  Sender: FDA-Public Use
  Company Number: US-BAYER-200614913BCC

PATIENT
  Sex: Female

DRUGS (1)
  1. ASPIRIN [Suspect]
     Indication: ARTHRALGIA
     Route: 048

REACTIONS (3)
  - BRAIN NEOPLASM MALIGNANT [None]
  - COLON CANCER [None]
  - GASTRIC CANCER [None]
